FAERS Safety Report 9144044 (Version 1)
Quarter: 2013Q1

REPORT INFORMATION
  Report Type: Spontaneous
  Country: US (occurrence: US)
  Receive Date: 20130306
  Receipt Date: 20130306
  Transmission Date: 20140127
  Serious: No
  Sender: FDA-Public Use
  Company Number: US-BAYER-2013-028745

PATIENT
  Sex: Female

DRUGS (4)
  1. CLIMARA PRO [Suspect]
     Indication: HOT FLUSH
     Dosage: 0.045MG/0.015MG/DAY
     Route: 062
     Dates: start: 20130220, end: 20130301
  2. CLIMARA PRO [Suspect]
     Indication: DEPRESSION
  3. CLIMARA PRO [Suspect]
     Indication: INSOMNIA
  4. CLIMARA PRO [Suspect]
     Indication: FATIGUE

REACTIONS (4)
  - Adnexa uteri pain [None]
  - Abdominal pain upper [None]
  - Cystitis [None]
  - Menstrual disorder [None]
